FAERS Safety Report 6595359-3 (Version None)
Quarter: 2010Q1

REPORT INFORMATION
  Report Type: 
  Country: None (occurrence: None)
  Receive Date: 20100223
  Receipt Date: 20100215
  Transmission Date: 20100710
  Serious: Yes (Hospitalization)
  Sender: FDA-Public Use
  Company Number: US-BIOGENIDEC-2010BI005063

PATIENT
  Age: 43 Year
  Sex: Female
  Weight: 94 kg

DRUGS (5)
  1. TYSABRI [Suspect]
     Indication: MULTIPLE SCLEROSIS
     Route: 042
     Dates: start: 20080423
  2. SYNTHROID [Concomitant]
     Route: 048
  3. ALBUTEROL [Concomitant]
     Route: 055
  4. PROZAC [Concomitant]
     Route: 048
  5. TIZANIDINE [Concomitant]
     Route: 048

REACTIONS (15)
  - AMNESIA [None]
  - BLOOD POTASSIUM DECREASED [None]
  - DIZZINESS [None]
  - FRACTURED SKULL DEPRESSED [None]
  - HAEMATOCRIT DECREASED [None]
  - HAEMOGLOBIN DECREASED [None]
  - HEADACHE [None]
  - LACERATION [None]
  - POST CONCUSSION SYNDROME [None]
  - RENAL CYST [None]
  - ROAD TRAFFIC ACCIDENT [None]
  - SUBDURAL HAEMATOMA [None]
  - TRAUMATIC LUNG INJURY [None]
  - UTERINE CYST [None]
  - WHITE BLOOD CELL COUNT INCREASED [None]
